FAERS Safety Report 24342495 (Version 5)
Quarter: 2025Q1

REPORT INFORMATION
  Report Type: Spontaneous
  Country: DE (occurrence: DE)
  Receive Date: 20240920
  Receipt Date: 20250321
  Transmission Date: 20250409
  Serious: Yes (Hospitalization, Other)
  Sender: CELLTRION
  Company Number: DE-CELLTRION INC.-2024DE013866

PATIENT

DRUGS (49)
  1. INFLIXIMAB [Suspect]
     Active Substance: INFLIXIMAB
     Indication: Axial spondyloarthritis
     Dosage: 400 MG, EVERY 2 WEEKS; VISIT/DATE OF T09: 2023-05-03, T10: 2023-08-25, AND T11: 2023-12-08
     Route: 042
     Dates: start: 20230419
  2. IBUPROFEN [Concomitant]
     Active Substance: IBUPROFEN
     Dates: start: 20191105
  3. IBUPROFEN [Concomitant]
     Active Substance: IBUPROFEN
  4. IBUPROFEN [Concomitant]
     Active Substance: IBUPROFEN
     Dates: start: 20180615, end: 20190310
  5. CELECOXIB [Concomitant]
     Active Substance: CELECOXIB
     Dosage: 200MG 1 DAY PER WEEK; T01: 2019-05-20, T02: 2019-09-23, T03: 2020-01-13, T04: 2020-11-25, T05: 2021-
     Dates: start: 20190311
  6. METHOTREXATE SODIUM [Concomitant]
     Active Substance: METHOTREXATE SODIUM
     Dosage: 10 MG, PER WEEK; T03: 2020-01-13, T04: 2020-11-25, T05: 2021-05-20, T06: 2021-08-26, T07: 2022-02-18
     Route: 058
     Dates: start: 20191105
  7. METHOTREXATE SODIUM [Concomitant]
     Active Substance: METHOTREXATE SODIUM
     Route: 058
     Dates: start: 20190520
  8. METHOTREXATE SODIUM [Concomitant]
     Active Substance: METHOTREXATE SODIUM
     Route: 058
     Dates: start: 20190520, end: 20190520
  9. BISOPROLOL [Concomitant]
     Active Substance: BISOPROLOL
  10. LEVOTHYROXINE [Concomitant]
     Active Substance: LEVOTHYROXINE
  11. PANTOPRAZOLE [Concomitant]
     Active Substance: PANTOPRAZOLE
  12. PROGESTERONE [Concomitant]
     Active Substance: PROGESTERONE
  13. ESTRADIOL [Concomitant]
     Active Substance: ESTRADIOL
  14. ESTRADIOL [Concomitant]
     Active Substance: ESTRADIOL
  15. ESTRIOL [Concomitant]
     Active Substance: ESTRIOL
  16. MIRABEGRON [Concomitant]
     Active Substance: MIRABEGRON
  17. MOVICOL [Concomitant]
     Active Substance: POLYETHYLENE GLYCOL 3350\POTASSIUM CHLORIDE\SODIUM BICARBONATE\SODIUM CHLORIDE
  18. MEBEVERINE [Concomitant]
     Active Substance: MEBEVERINE
  19. CHOLECALCIFEROL [Concomitant]
     Active Substance: CHOLECALCIFEROL
  20. SERTRALINE [Concomitant]
     Active Substance: SERTRALINE HYDROCHLORIDE
  21. QUETIAPINE [Concomitant]
     Active Substance: QUETIAPINE
  22. OPIPRAMOL [Concomitant]
     Active Substance: OPIPRAMOL
  23. BUPRENORPHINE [Concomitant]
     Active Substance: BUPRENORPHINE
  24. BUPRENORPHINE [Concomitant]
     Active Substance: BUPRENORPHINE
  25. FOLIC ACID [Concomitant]
     Active Substance: FOLIC ACID
  26. ALBUTEROL [Concomitant]
     Active Substance: ALBUTEROL
  27. BUDESONIDE [Concomitant]
     Active Substance: BUDESONIDE
  28. ENOXAPARIN [Concomitant]
     Active Substance: ENOXAPARIN
  29. CLARITHROMYCIN [Concomitant]
     Active Substance: CLARITHROMYCIN
  30. CEFPODOXIME [Concomitant]
     Active Substance: CEFPODOXIME
  31. METAMIZOL [Concomitant]
     Active Substance: METAMIZOLE SODIUM
  32. ENBREL [Concomitant]
     Active Substance: ETANERCEPT
     Dates: start: 20190218
  33. ENBREL [Concomitant]
     Active Substance: ETANERCEPT
     Dates: start: 20190218, end: 20220901
  34. BUPRENORPHINE HYDROCHLORIDE [Concomitant]
     Active Substance: BUPRENORPHINE HYDROCHLORIDE
     Route: 060
  35. ESTRIOL [Concomitant]
     Active Substance: ESTRIOL
  36. NORFLOXACIN [Concomitant]
     Active Substance: NORFLOXACIN
  37. FOLIC ACID [Concomitant]
     Active Substance: FOLIC ACID
  38. ESTRADIOL [Concomitant]
     Active Substance: ESTRADIOL
     Route: 062
  39. CHOLECALCIFEROL [Concomitant]
     Active Substance: CHOLECALCIFEROL
  40. ENOXAPARIN SODIUM [Concomitant]
     Active Substance: ENOXAPARIN SODIUM
  41. OXYBUTYNIN [Concomitant]
     Active Substance: OXYBUTYNIN
  42. PROGESTERONE [Concomitant]
     Active Substance: PROGESTERONE
  43. TROSPIUM [Concomitant]
     Active Substance: TROSPIUM
  44. QUETIAPINE [Concomitant]
     Active Substance: QUETIAPINE
  45. ROSUVASTATIN [Concomitant]
     Active Substance: ROSUVASTATIN
  46. LEVOTHYROXINE [Concomitant]
     Active Substance: LEVOTHYROXINE
  47. PANTOPRAZOLE [Concomitant]
     Active Substance: PANTOPRAZOLE
  48. RAMIPRIL [Concomitant]
     Active Substance: RAMIPRIL
  49. APIXABAN [Concomitant]
     Active Substance: APIXABAN

REACTIONS (3)
  - Anaemia postoperative [Recovered/Resolved]
  - Osteomyelitis chronic [Recovered/Resolved]
  - Pain [Unknown]

NARRATIVE: CASE EVENT DATE: 20230925
